FAERS Safety Report 14386778 (Version 1)
Quarter: 2018Q1

REPORT INFORMATION
  Report Type: Spontaneous
  Country: US (occurrence: US)
  Receive Date: 20180115
  Receipt Date: 20180115
  Transmission Date: 20180509
  Serious: Yes (Other)
  Sender: FDA-Public Use
  Company Number: US-SA-2017SA116300

PATIENT
  Age: 34 Year
  Sex: Female
  Weight: 55.79 kg

DRUGS (5)
  1. TAXOTERE [Suspect]
     Active Substance: DOCETAXEL
     Indication: BREAST CANCER FEMALE
     Route: 051
     Dates: start: 201611, end: 201611
  2. HERCEPTIN [Concomitant]
     Active Substance: TRASTUZUMAB
  3. CARBOPLATIN. [Concomitant]
     Active Substance: CARBOPLATIN
  4. PERJETA [Concomitant]
     Active Substance: PERTUZUMAB
  5. TAXOTERE [Suspect]
     Active Substance: DOCETAXEL
     Indication: BREAST CANCER FEMALE
     Route: 051
     Dates: start: 201706, end: 201706

REACTIONS (2)
  - Alopecia [Not Recovered/Not Resolved]
  - Psychological trauma [Unknown]
